FAERS Safety Report 8316979-1 (Version None)
Quarter: 2012Q2

REPORT INFORMATION
  Report Type: 
  Country: None (occurrence: None)
  Receive Date: 20120427
  Receipt Date: 20120419
  Transmission Date: 20120825
  Serious: Yes (Hospitalization)
  Sender: FDA-Public Use
  Company Number: US-BAYER-2011-111084

PATIENT
  Age: 30 Year
  Sex: Female
  Weight: 69.841 kg

DRUGS (20)
  1. CLONIDINE [Concomitant]
     Dosage: 0.1 MG, UNK
     Dates: start: 20091003
  2. CIPROFLOXACIN [Concomitant]
     Dosage: 500 MG, UNK
     Dates: start: 20091004
  3. DEXAMETHASONE W/TOBRAMYCIN [Concomitant]
     Dosage: 5 ML
     Dates: start: 20090831
  4. YASMIN [Suspect]
     Indication: MENSTRUATION IRREGULAR
  5. TAMIFLU [Concomitant]
     Dosage: 75 MG, UNK
     Dates: start: 20091005
  6. METHYLDOPA [Concomitant]
  7. NEXIUM [Concomitant]
     Indication: REFLUX GASTRITIS
     Dosage: 40 MG, QD
     Dates: start: 20090101
  8. METOCLOPRAMIDE [Concomitant]
     Dosage: 10 MG, UNK
     Dates: start: 20091003
  9. ZOFRAN [Concomitant]
     Dosage: 4 MG, UNK
     Route: 042
  10. CITALOPRAM HYDROBROMIDE [Concomitant]
     Dosage: 10 MG,TABLETS
     Dates: start: 20091005
  11. ALPRAZOLAM [Concomitant]
     Dosage: 2.5 MG, UNK
     Dates: start: 20091004
  12. METHYLPREDNISOLONE [Concomitant]
     Dosage: 4 MG DOSEPAK 21+#8217;S
     Dates: start: 20091005
  13. CLONAZEPAM [Concomitant]
  14. PHENERGAN HCL [Concomitant]
  15. YASMIN [Suspect]
     Indication: CONTRACEPTION
     Dosage: UNK
     Dates: start: 20050131, end: 20091001
  16. LISINOPRIL [Concomitant]
     Indication: HYPERTENSION
     Dosage: 10 MG, QD
  17. ALBUTEROL [Concomitant]
  18. NITROGLYCERIN [Concomitant]
     Dosage: 1 INCH EVERY 8 HOURS
     Dates: start: 20091007
  19. POTASSIUM CHLORIDE [Concomitant]
     Dosage: 40 MEG
     Route: 042
     Dates: start: 20091009
  20. OFLOXACIN [Concomitant]
     Dosage: 3 %, UNK
     Dates: start: 20090904

REACTIONS (5)
  - DEEP VEIN THROMBOSIS [None]
  - MENTAL DISORDER [None]
  - ANXIETY [None]
  - PAIN [None]
  - THROMBOPHLEBITIS SUPERFICIAL [None]
